FAERS Safety Report 7577199-1 (Version None)
Quarter: 2011Q2

REPORT INFORMATION
  Report Type: 
  Country: None (occurrence: None)
  Receive Date: 20110628
  Receipt Date: 20110606
  Transmission Date: 20111010
  Serious: Yes (Hospitalization)
  Sender: FDA-Public Use
  Company Number: SK-BAYER-2011-052873

PATIENT
  Age: 24 Year
  Sex: Male

DRUGS (1)
  1. ACETAMINOPHEN [Suspect]
     Dosage: HIGH DOSE (NOT SPECIFIED)

REACTIONS (3)
  - LIVER INJURY [None]
  - JAUNDICE [None]
  - HEPATIC ENZYME INCREASED [None]
